FAERS Safety Report 7728433-6 (Version None)
Quarter: 2011Q3

REPORT INFORMATION
  Report Type: 
  Country: None (occurrence: None)
  Receive Date: 20110905
  Receipt Date: 20110826
  Transmission Date: 20111222
  Serious: Yes (Hospitalization)
  Sender: FDA-Public Use
  Company Number: FR-MILLENNIUM PHARMACEUTICALS, INC.-2011-02272

PATIENT

DRUGS (7)
  1. DEXAMETHASONE [Suspect]
     Dosage: UNK
     Route: 065
     Dates: start: 20110528
  2. LEVOXYL [Concomitant]
     Indication: ANTIBIOTIC PROPHYLAXIS
     Dosage: 1 G, UNK
     Dates: start: 20110516
  3. VELCADE [Suspect]
     Indication: MULTIPLE MYELOMA
     Dosage: 1.3 MG, UNK
     Route: 065
     Dates: start: 20110516, end: 20110524
  4. DEXAMETHASONE [Suspect]
     Indication: MULTIPLE MYELOMA
     Dosage: 20 MG, UNK
     Route: 065
     Dates: start: 20110516, end: 20110525
  5. BACTRIM [Concomitant]
     Indication: ANTIBIOTIC PROPHYLAXIS
     Dosage: 400 MG, UNK
     Dates: start: 20110516
  6. ZELITREX                           /01269701/ [Concomitant]
     Indication: ANTIBIOTIC PROPHYLAXIS
     Dosage: 520 MG, UNK
  7. REVLIMID [Suspect]
     Indication: MULTIPLE MYELOMA
     Dosage: 25 MG, UNK
     Route: 065
     Dates: start: 20110516, end: 20110526

REACTIONS (1)
  - UNEVALUABLE EVENT [None]
